FAERS Safety Report 18555902 (Version 1)
Quarter: 2020Q4

REPORT INFORMATION
  Report Type: Spontaneous
  Country: NL (occurrence: NL)
  Receive Date: 20201127
  Receipt Date: 20201127
  Transmission Date: 20210114
  Serious: Yes (Hospitalization)
  Sender: FDA-Public Use
  Company Number: NL-ASTRAZENECA-2020SF54898

PATIENT
  Age: 70 Year
  Sex: Female
  Weight: 76 kg

DRUGS (2)
  1. DURVALUMAB. [Concomitant]
     Active Substance: DURVALUMAB
     Dosage: INFUUS, 1 MG/MG (MILLIGRAM PER MILLIGRAM)
  2. LYNPARZA [Suspect]
     Active Substance: OLAPARIB
     Indication: OVARIAN CANCER
     Route: 048
     Dates: start: 20190219, end: 20200929

REACTIONS (3)
  - Pancytopenia [Recovered/Resolved]
  - Drug level increased [Recovered/Resolved]
  - Febrile neutropenia [Recovered/Resolved]

NARRATIVE: CASE EVENT DATE: 20200929
